FAERS Safety Report 17153329 (Version 1)
Quarter: 2019Q4

REPORT INFORMATION
  Report Type: Report from Study
  Country: US (occurrence: US)
  Receive Date: 20191213
  Receipt Date: 20191213
  Transmission Date: 20200122
  Serious: Yes (Other)
  Sender: FDA-Public Use
  Company Number: US-GILEAD-2019-0442524

PATIENT
  Age: 54 Year
  Sex: Male

DRUGS (1)
  1. AXICABTAGENE CILOLEUCEL [Suspect]
     Active Substance: AXICABTAGENE CILOLEUCEL
     Indication: NON-HODGKIN^S LYMPHOMA
     Dosage: 610, ONCE
     Route: 042
     Dates: start: 201802, end: 201802

REACTIONS (4)
  - Feeling abnormal [Unknown]
  - Cytokine release syndrome [Unknown]
  - Amnesia [Unknown]
  - Cell-mediated immune deficiency [Unknown]
